FAERS Safety Report 8857096 (Version 1)
Quarter: 2012Q4

REPORT INFORMATION
  Report Type: 
  Country: US (occurrence: US)
  Receive Date: 20121023
  Receipt Date: 20121023
  Transmission Date: 20130627
  Serious: No
  Sender: FDA-Public Use
  Company Number: US-AMGEN-USASP2012054904

PATIENT
  Age: 37 Year
  Sex: Male
  Weight: 83.64 kg

DRUGS (6)
  1. ENBREL [Suspect]
     Indication: PRODUCT USED FOR UNKNOWN INDICATION
     Dosage: 50 mg, qwk
     Route: 058
  2. KLONOPIN [Concomitant]
     Dosage: 0.5 mg, UNK
  3. PLAQUENIL                          /00072602/ [Concomitant]
     Dosage: 200 mg, UNK
  4. ULTRAM ER [Concomitant]
     Dosage: 300 mg, UNK
  5. IBUPROFEN [Concomitant]
     Dosage: 200 mg, UNK
  6. PRILOSEC                           /00661201/ [Concomitant]
     Dosage: 10 mg, UNK

REACTIONS (1)
  - Nasopharyngitis [Unknown]
